FAERS Safety Report 5778061-7 (Version None)
Quarter: 2008Q2

REPORT INFORMATION
  Report Type: 
  Country: None (occurrence: None)
  Receive Date: 20080617
  Receipt Date: 20080617
  Transmission Date: 20081010
  Serious: Yes (Other)
  Sender: FDA-Public Use
  Company Number: None

PATIENT
  Age: 67 Year
  Sex: Female
  Weight: 81.6475 kg

DRUGS (1)
  1. LYRICA [Suspect]
     Indication: PAIN
     Dosage: 75MG 2 TIMES DAILY PO
     Route: 048
     Dates: start: 20080511, end: 20080525

REACTIONS (5)
  - BRONCHITIS [None]
  - CELLULITIS [None]
  - HALLUCINATION [None]
  - INCOHERENT [None]
  - TREMOR [None]
